FAERS Safety Report 25062349 (Version 3)
Quarter: 2025Q2

REPORT INFORMATION
  Report Type: Spontaneous
  Country: FR (occurrence: FR)
  Receive Date: 20250311
  Receipt Date: 20250404
  Transmission Date: 20250717
  Serious: Yes (Hospitalization, Other)
  Sender: SANDOZ
  Company Number: None

PATIENT
  Age: 71 Year
  Sex: Female

DRUGS (19)
  1. BACTRIM [Suspect]
     Active Substance: SULFAMETHOXAZOLE\TRIMETHOPRIM
     Dosage: UNK, 3 DF, 1DFX3/WEEK; 1 TABLET(S) MORNING (MONDAY-WEDNESDAY-FRIDAY)
     Route: 048
     Dates: start: 20241104, end: 20250117
  2. BACTRIM [Suspect]
     Active Substance: SULFAMETHOXAZOLE\TRIMETHOPRIM
     Indication: Opportunistic infection prophylaxis
     Route: 048
  3. BACTRIM [Suspect]
     Active Substance: SULFAMETHOXAZOLE\TRIMETHOPRIM
     Indication: Opportunistic infection prophylaxis
     Route: 048
     Dates: start: 20241104, end: 20250117
  4. CELLCEPT [Suspect]
     Active Substance: MYCOPHENOLATE MOFETIL
     Indication: Renal transplant
     Dosage: 2 G, QD, 1GX2/D; 1 TABLET(S) AT 8AM, 1 TABLET(S) AT 8PM, STRENGTH: 250 MG / 1 EA
     Route: 048
     Dates: start: 20241104, end: 20250116
  5. CELLCEPT [Suspect]
     Active Substance: MYCOPHENOLATE MOFETIL
     Route: 048
     Dates: start: 20250113
  6. PREDNISONE [Suspect]
     Active Substance: PREDNISONE
     Indication: Opportunistic infection prophylaxis
     Dosage: 10 MG, QD, 10 MILLIGRAM(S) IN THE MORNING, STRENGTH: 5 MG / 1 EA
     Route: 065
  7. PREDNISONE [Suspect]
     Active Substance: PREDNISONE
     Route: 048
     Dates: start: 20241104, end: 20250117
  8. VALCYTE [Suspect]
     Active Substance: VALGANCICLOVIR HYDROCHLORIDE
     Indication: Renal transplant
     Route: 048
     Dates: start: 20241104, end: 20250116
  9. ATORVASTATIN [Concomitant]
     Active Substance: ATORVASTATIN
     Indication: Product used for unknown indication
     Route: 065
  10. BISOPROLOL [Concomitant]
     Active Substance: BISOPROLOL
     Indication: Product used for unknown indication
     Dosage: 1 TABLET(S) MORNING FOR 30 DAY(S)
     Route: 065
  11. ELIQUIS [Concomitant]
     Active Substance: APIXABAN
     Indication: Product used for unknown indication
     Route: 065
  12. ENVARSUS XR [Concomitant]
     Active Substance: TACROLIMUS
     Indication: Product used for unknown indication
     Route: 065
     Dates: start: 20250113
  13. FOLIC ACID [Concomitant]
     Active Substance: FOLIC ACID
     Indication: Product used for unknown indication
     Dosage: 1 TABLET(S) MORNING
     Route: 065
  14. FUROSEMIDE [Concomitant]
     Active Substance: FUROSEMIDE
     Indication: Product used for unknown indication
     Dosage: 1 TABLET(S) NOON FOR 30 DAY(S)
     Route: 065
  15. LEVEMIR [Concomitant]
     Active Substance: INSULIN DETEMIR
     Indication: Product used for unknown indication
     Dosage: 8 INTERNATIONAL UNIT(S) MORNING
     Route: 065
  16. LEVOTHYROXINE [Concomitant]
     Active Substance: LEVOTHYROXINE
     Route: 065
  17. LEVOTHYROXINE [Concomitant]
     Active Substance: LEVOTHYROXINE
     Indication: Product used for unknown indication
     Dosage: 100 MG, QD 100MCG CPR 1 TABLET(S) MORNING
     Route: 065
  18. PANTOPRAZOLE [Concomitant]
     Active Substance: PANTOPRAZOLE
     Indication: Product used for unknown indication
     Dosage: 1 DF, QD 1 TABLET IN THE EVENING
     Route: 065
  19. REPAGLINIDE [Concomitant]
     Active Substance: REPAGLINIDE
     Indication: Product used for unknown indication
     Dosage: 3 DF, QD (1 TABLET(S) MORNING, 1 TABLET(S) NOON, 1 TABLET(S) EVENING)
     Route: 065

REACTIONS (2)
  - Leukopenia [Recovered/Resolved]
  - Renal abscess [Unknown]

NARRATIVE: CASE EVENT DATE: 20250110
